FAERS Safety Report 9476096 (Version 2)
Quarter: 2013Q3

REPORT INFORMATION
  Report Type: Spontaneous
  Country: CM (occurrence: CM)
  Receive Date: 20130826
  Receipt Date: 20130920
  Transmission Date: 20140515
  Serious: Yes (Hospitalization, Other)
  Sender: FDA-Public Use
  Company Number: CM-009507513-1308CMR009864

PATIENT
  Age: 67 Year
  Sex: Male

DRUGS (4)
  1. MECTIZAN [Suspect]
     Indication: ONCHOCERCIASIS
     Dosage: 4 DF, UNK
     Route: 048
     Dates: start: 20130723
  2. MECTIZAN [Suspect]
     Indication: FILARIASIS LYMPHATIC
  3. ALBENDAZOLE [Suspect]
     Indication: ONCHOCERCIASIS
     Dosage: 1 DF, UNK
     Route: 048
     Dates: start: 20130723
  4. ALBENDAZOLE [Suspect]
     Indication: FILARIASIS LYMPHATIC

REACTIONS (10)
  - Encephalopathy [Recovering/Resolving]
  - Depressed level of consciousness [Recovering/Resolving]
  - Abnormal behaviour [Recovering/Resolving]
  - Aphasia [Recovering/Resolving]
  - Headache [Recovering/Resolving]
  - Asthenia [Not Recovered/Not Resolved]
  - Vertigo [Not Recovered/Not Resolved]
  - Palpitations [Recovering/Resolving]
  - Diarrhoea [Recovering/Resolving]
  - Coma [Recovered/Resolved]
